FAERS Safety Report 6576644-8 (Version None)
Quarter: 2010Q1

REPORT INFORMATION
  Report Type: 
  Country: None (occurrence: None)
  Receive Date: 20100210
  Receipt Date: 20100128
  Transmission Date: 20100710
  Serious: Yes (Hospitalization, Other)
  Sender: FDA-Public Use
  Company Number: US-PFIZER INC-2010012150

PATIENT
  Sex: Female
  Weight: 45.4 kg

DRUGS (6)
  1. METHYLPREDNISOLONE ACETATE [Suspect]
     Dosage: UNK
     Dates: start: 20041101
  2. PREDNISONE [Suspect]
     Dosage: UNK
     Dates: start: 20040101
  3. ETANERCEPT [Suspect]
     Indication: RHEUMATOID ARTHRITIS
     Dosage: 50 MG, 1 IN 1 WEEKS
     Route: 058
     Dates: start: 20050401, end: 20080401
  4. ETANERCEPT [Suspect]
     Dosage: UNK
  5. TRAMADOL HYDROCHLORIDE AND ACETAMINOPHEN [Concomitant]
     Dosage: UNK
     Dates: start: 20040101
  6. CELECOXIB [Concomitant]
     Dosage: UNK
     Dates: start: 20000101

REACTIONS (5)
  - DISSEMINATED TUBERCULOSIS [None]
  - EMPYEMA [None]
  - HYDRONEPHROSIS [None]
  - NEPHROLITHIASIS [None]
  - SPLENOMEGALY [None]
